FAERS Safety Report 4615945-7 (Version None)
Quarter: 2005Q1

REPORT INFORMATION
  Report Type: 
  Country: None (occurrence: None)
  Receive Date: 20050318
  Receipt Date: 20050304
  Transmission Date: 20050727
  Serious: Yes (Hospitalization)
  Sender: FDA-Public Use
  Company Number: DSA_26080_2005

PATIENT
  Age: 64 Year
  Sex: Male

DRUGS (7)
  1. DILTIAZEM [Suspect]
     Indication: HYPERTENSION
     Dosage: 200 MG Q DAY PO
     Route: 048
  2. METOPROLOL TARTRATE [Suspect]
     Indication: HYPERTENSION
     Dosage: 50 MG Q DAY PO
     Route: 048
     Dates: start: 20041201
  3. SILDENAFIL [Concomitant]
  4. ASPIRIN [Concomitant]
  5. CANDESARTAN [Concomitant]
  6. BENDROFLUAZIDE [Concomitant]
  7. DOXAZOSIN [Concomitant]

REACTIONS (1)
  - BRADYCARDIA [None]
